FAERS Safety Report 8007472-4 (Version None)
Quarter: 2011Q4

REPORT INFORMATION
  Report Type: 
  Country: None (occurrence: None)
  Receive Date: 20111222
  Receipt Date: 20111222
  Transmission Date: 20120403
  Serious: Yes (Hospitalization)
  Sender: FDA-Public Use
  Company Number: None

PATIENT
  Age: 66 Year
  Sex: Male
  Weight: 110.5 kg

DRUGS (4)
  1. ENOXAPARIN [Suspect]
     Indication: ANTICOAGULANT THERAPY
     Dosage: 100 MG BID SQ
     Route: 058
     Dates: start: 20110415, end: 20110419
  2. ENOXAPARIN [Suspect]
     Indication: GASTROINTESTINAL SURGERY
     Dosage: 100 MG BID SQ
     Route: 058
     Dates: start: 20110415, end: 20110419
  3. WARFARIN SODIUM [Suspect]
     Indication: PULMONARY EMBOLISM
     Dosage: 10 MG PM PO
     Route: 048
     Dates: start: 20110415
  4. WARFARIN SODIUM [Suspect]
     Indication: DEEP VEIN THROMBOSIS
     Dosage: 10 MG PM PO
     Route: 048
     Dates: start: 20110415

REACTIONS (8)
  - TACHYPNOEA [None]
  - BILE DUCT STONE [None]
  - DIVERTICULUM INTESTINAL [None]
  - GASTRIC HAEMORRHAGE [None]
  - PROTHROMBIN TIME PROLONGED [None]
  - ASTHENIA [None]
  - INTERNATIONAL NORMALISED RATIO DECREASED [None]
  - PALLOR [None]
